FAERS Safety Report 7316474-2 (Version None)
Quarter: 2011Q1

REPORT INFORMATION
  Report Type: 
  Country: None (occurrence: None)
  Receive Date: 20110225
  Receipt Date: 20110216
  Transmission Date: 20110831
  Serious: Yes (Other)
  Sender: FDA-Public Use
  Company Number: CA-BAYER-2011-015128

PATIENT
  Age: 73 Year
  Sex: Male
  Weight: 104 kg

DRUGS (2)
  1. AVELOX [Suspect]
     Route: 042
  2. AVELOX [Suspect]
     Dosage: 400 MG, QD

REACTIONS (1)
  - HYPOGLYCAEMIA [None]
